FAERS Safety Report 25006309 (Version 3)
Quarter: 2025Q2

REPORT INFORMATION
  Report Type: Report from Study
  Country: US (occurrence: US)
  Receive Date: 20250224
  Receipt Date: 20250625
  Transmission Date: 20250717
  Serious: Yes (Hospitalization, Other)
  Sender: ABBVIE
  Company Number: US-ABBVIE-6143337

PATIENT
  Age: 52 Year
  Sex: Female
  Weight: 49 kg

DRUGS (4)
  1. RESTASIS [Suspect]
     Active Substance: CYCLOSPORINE
     Indication: Dry eye
     Dosage: FORM STRENGTH  0.5 MILLIGRAM?FREQUENCY TEXT: 1 DROP PER BID IN RIGHT AND LEFT EYE
     Route: 047
     Dates: start: 2003
  2. PANTOPRAZOLE [Concomitant]
     Active Substance: PANTOPRAZOLE
     Indication: Gastrooesophageal reflux disease
  3. OXYCODONE [Concomitant]
     Active Substance: OXYCODONE
     Indication: Product used for unknown indication
     Route: 042
  4. TYLENOL [Concomitant]
     Active Substance: ACETAMINOPHEN
     Indication: Product used for unknown indication

REACTIONS (10)
  - Intervertebral disc degeneration [Recovering/Resolving]
  - Osteoporosis [Unknown]
  - Osteopenia [Unknown]
  - Spondylolisthesis [Unknown]
  - Spinal stenosis [Unknown]
  - Craniofacial fracture [Unknown]
  - Oophorectomy bilateral [Unknown]
  - Knee operation [Unknown]
  - Infection [Unknown]
  - Rotator cuff syndrome [Unknown]

NARRATIVE: CASE EVENT DATE: 20060101
